FAERS Safety Report 8572500-4 (Version None)
Quarter: 2012Q3

REPORT INFORMATION
  Report Type: 
  Country: None (occurrence: None)
  Receive Date: 20120806
  Receipt Date: 20120713
  Transmission Date: 20120928
  Serious: Yes (Other)
  Sender: FDA-Public Use
  Company Number: CA-ROCHE-1081874

PATIENT
  Sex: Male
  Weight: 73.548 kg

DRUGS (17)
  1. FLOMAX [Concomitant]
  2. VITAMIN D [Concomitant]
  3. CALCIUM [Concomitant]
  4. METAMUCIL-2 [Concomitant]
  5. LEVOFLOXACIN [Suspect]
     Indication: PRODUCT USED FOR UNKNOWN INDICATION
  6. INSULIN [Concomitant]
  7. ACTONEL [Concomitant]
  8. NPH INSULIN [Concomitant]
  9. TYLENOL W/ CODEINE NO. 3 [Concomitant]
  10. PREDNISONE [Concomitant]
  11. MABTHERA [Suspect]
     Indication: RHEUMATOID ARTHRITIS
     Route: 042
     Dates: start: 20110812
  12. COLACE [Concomitant]
  13. PROSCAR [Concomitant]
  14. SENOKOT [Concomitant]
  15. LACTULOSE [Concomitant]
  16. GABAPENTIN [Concomitant]
  17. PANTOPRAZOLE SODIUM [Concomitant]

REACTIONS (3)
  - DRUG HYPERSENSITIVITY [None]
  - PNEUMONIA [None]
  - OSTEOMYELITIS [None]
